FAERS Safety Report 5802020-9 (Version None)
Quarter: 2008Q3

REPORT INFORMATION
  Report Type: 
  Country: None (occurrence: None)
  Receive Date: 20080707
  Receipt Date: 20080626
  Transmission Date: 20090109
  Serious: Yes (Hospitalization)
  Sender: FDA-Public Use
  Company Number: BR-ROCHE-573269

PATIENT
  Sex: Female
  Weight: 68 kg

DRUGS (5)
  1. RIVOTRIL [Suspect]
     Dosage: ROUTE ORAL, STREGTH 2 MG, RECEIVED AT NIGHT
     Route: 050
     Dates: start: 20070601, end: 20080201
  2. RIVOTRIL [Suspect]
     Dosage: STRENGTH 0.25, ROUTE SUBLINGUAL, DOSAGE REGIMEN 1 TABLET ON CRISIS
     Route: 050
     Dates: start: 20080201
  3. CLOXAZOLAM [Concomitant]
     Indication: INSOMNIA
     Dosage: DRUG NAME REPORTED AS EUTONIS
     Route: 048
     Dates: start: 20071201
  4. CITALOPRAM HYDROBROMIDE [Concomitant]
     Indication: ANXIETY
  5. AMITRIPTILINA [Concomitant]
     Indication: ANXIETY

REACTIONS (5)
  - ABDOMINAL DISTENSION [None]
  - GASTRIC DILATATION [None]
  - HELICOBACTER PYLORI IDENTIFICATION TEST POSITIVE [None]
  - ORAL NEOPLASM BENIGN [None]
  - WEIGHT INCREASED [None]
